FAERS Safety Report 19019160 (Version 1)
Quarter: 2021Q1

REPORT INFORMATION
  Report Type: Spontaneous
  Country: BR (occurrence: BR)
  Receive Date: 20210316
  Receipt Date: 20210316
  Transmission Date: 20210420
  Serious: Yes (Other)
  Sender: FDA-Public Use
  Company Number: BR-ASTRAZENECA-2021A131287

PATIENT
  Sex: Female

DRUGS (2)
  1. SYMBICORT [Suspect]
     Active Substance: BUDESONIDE\FORMOTEROL FUMARATE DIHYDRATE
     Indication: ASTHMA
     Dosage: 160/4.5 MCG, 1 JET EVERY 12 HOURS
     Route: 055
     Dates: start: 2020
  2. SYMBICORT [Suspect]
     Active Substance: BUDESONIDE\FORMOTEROL FUMARATE DIHYDRATE
     Indication: ASTHMA
     Dosage: UNKNOWN UNKNOWN
     Route: 055

REACTIONS (10)
  - Drug delivery system issue [Not Recovered/Not Resolved]
  - Mobility decreased [Unknown]
  - COVID-19 [Recovered/Resolved]
  - Muscular weakness [Recovered/Resolved]
  - Dyspnoea [Not Recovered/Not Resolved]
  - Intentional device misuse [Unknown]
  - Drug ineffective [Not Recovered/Not Resolved]
  - Product administration error [Unknown]
  - Rotator cuff syndrome [Unknown]
  - Illness [Recovered/Resolved]

NARRATIVE: CASE EVENT DATE: 202011
